FAERS Safety Report 9202206 (Version 1)
Quarter: 2013Q1

REPORT INFORMATION
  Report Type: Spontaneous
  Country: IT (occurrence: None)
  Receive Date: 20130328
  Receipt Date: 20130328
  Transmission Date: 20140127
  Serious: Yes (Hospitalization)
  Sender: FDA-Public Use
  Company Number: 2013AP003884

PATIENT
  Age: 69 Year
  Sex: Female

DRUGS (5)
  1. LEVOFLOXACIN (LEVOFLOXACIN) [Suspect]
     Indication: PYREXIA
     Route: 048
     Dates: start: 20130225, end: 20130301
  2. AMARYL (GLIMEPIRIDE) [Concomitant]
  3. SEROQUEL (QUETIAPINE FUMARATE) [Concomitant]
  4. TAVOR [Concomitant]
  5. XENAZINE (TETRABENAZINE) [Concomitant]

REACTIONS (3)
  - Liver disorder [None]
  - Hepatic enzyme increased [None]
  - Off label use [None]
